FAERS Safety Report 9285817 (Version 1)
Quarter: 2013Q2

REPORT INFORMATION
  Report Type: Spontaneous
  Country: IL (occurrence: IL)
  Receive Date: 20130513
  Receipt Date: 20130513
  Transmission Date: 20140414
  Serious: Yes (Other)
  Sender: FDA-Public Use
  Company Number: IL-PFIZER INC-2013146881

PATIENT
  Sex: Female

DRUGS (1)
  1. LYRICA [Suspect]
     Indication: NEURALGIA
     Route: 048

REACTIONS (1)
  - Paralysis [Unknown]
